FAERS Safety Report 15626855 (Version 1)
Quarter: 2018Q4

REPORT INFORMATION
  Report Type: Spontaneous
  Country: IT (occurrence: IT)
  Receive Date: 20181116
  Receipt Date: 20181116
  Transmission Date: 20190205
  Serious: Yes (Other)
  Sender: FDA-Public Use
  Company Number: IT-PFIZER INC-2018468777

PATIENT
  Age: 57 Year
  Sex: Female

DRUGS (14)
  1. LANTUS [Concomitant]
     Active Substance: INSULIN GLARGINE
  2. DIFLUCAN [Concomitant]
     Active Substance: FLUCONAZOLE
  3. IBRANCE [Suspect]
     Active Substance: PALBOCICLIB
     Indication: BREAST CANCER
     Dosage: 125 MG, 1X/DAY
     Route: 048
     Dates: start: 20170906
  4. NYSTATIN. [Concomitant]
     Active Substance: NYSTATIN
  5. ACIDO ZOLEDRONICO SANDOZ [Concomitant]
     Active Substance: ZOLEDRONIC ACID
     Dates: start: 20151103
  6. DEXAMETHASONE. [Concomitant]
     Active Substance: DEXAMETHASONE
  7. LANSOPRAZOLE. [Concomitant]
     Active Substance: LANSOPRAZOLE
  8. BACTRIM [Concomitant]
     Active Substance: SULFAMETHOXAZOLE\TRIMETHOPRIM
  9. CLEXANE [Concomitant]
     Active Substance: ENOXAPARIN SODIUM
  10. DIBASE [Concomitant]
     Active Substance: CHOLECALCIFEROL
  11. KEPPRA [Concomitant]
     Active Substance: LEVETIRACETAM
  12. DICLOFENAC [Concomitant]
     Active Substance: DICLOFENAC
  13. QUARK [Concomitant]
     Active Substance: RAMIPRIL
  14. FASLODEX [Concomitant]
     Active Substance: FULVESTRANT
     Dates: start: 20170906

REACTIONS (6)
  - Mucosal inflammation [Recovered/Resolved]
  - Hypertransaminasaemia [Recovered/Resolved]
  - Asthenia [Recovered/Resolved]
  - Neutropenia [Recovered/Resolved]
  - Leukopenia [Recovered/Resolved]
  - Thrombocytopenia [Recovered/Resolved]

NARRATIVE: CASE EVENT DATE: 20171004
